FAERS Safety Report 25046388 (Version 1)
Quarter: 2025Q1

REPORT INFORMATION
  Report Type: Spontaneous
  Country: DE (occurrence: DE)
  Receive Date: 20250306
  Receipt Date: 20250306
  Transmission Date: 20250408
  Serious: Yes (Life-Threatening, Hospitalization, Disabling, Other)
  Sender: TEVA
  Company Number: DE-DCGMA-25204642

PATIENT
  Age: 43 Year
  Sex: Female
  Weight: 84 kg

DRUGS (3)
  1. ANAGRELIDE [Suspect]
     Active Substance: ANAGRELIDE
     Indication: Essential thrombocythaemia
     Route: 048
     Dates: start: 202204
  2. EDOXABAN TOSYLATE [Concomitant]
     Active Substance: EDOXABAN TOSYLATE
     Indication: Visceral venous thrombosis
     Route: 065
     Dates: start: 202207
  3. DILTIAZEM [Concomitant]
     Active Substance: DILTIAZEM
     Indication: Prinzmetal angina
     Route: 048
     Dates: start: 202302

REACTIONS (7)
  - Prinzmetal angina [Unknown]
  - Ventricular fibrillation [Recovered/Resolved with Sequelae]
  - Resuscitation [Recovered/Resolved]
  - Angina unstable [Recovered/Resolved with Sequelae]
  - Acute myocardial infarction [Recovered/Resolved with Sequelae]
  - Vasospasm [Unknown]
  - Vascular occlusion [Unknown]

NARRATIVE: CASE EVENT DATE: 20220801
